FAERS Safety Report 20893205 (Version 1)
Quarter: 2022Q2

REPORT INFORMATION
  Report Type: Spontaneous
  Country: US (occurrence: US)
  Receive Date: 20220531
  Receipt Date: 20220531
  Transmission Date: 20220721
  Serious: No
  Sender: FDA-Public Use
  Company Number: US-TEVA-2022-US-2035441

PATIENT
  Age: 75 Year
  Sex: Female
  Weight: 47.63 kg

DRUGS (2)
  1. AJOVY [Suspect]
     Active Substance: FREMANEZUMAB-VFRM
     Dosage: DOSE:225/1.5 MG/ML
     Route: 065
     Dates: end: 20220309
  2. AJOVY [Suspect]
     Active Substance: FREMANEZUMAB-VFRM

REACTIONS (4)
  - Insomnia [Unknown]
  - Decreased appetite [Unknown]
  - Weight increased [Unknown]
  - Dizziness [Unknown]
